FAERS Safety Report 9780877 (Version 2)
Quarter: 2013Q4

REPORT INFORMATION
  Report Type: Spontaneous
  Country: US (occurrence: US)
  Receive Date: 20131224
  Receipt Date: 20131224
  Transmission Date: 20140711
  Serious: Yes (Hospitalization)
  Sender: FDA-Public Use
  Company Number: US-ASTRAZENECA-2006UW03163

PATIENT
  Age: 882 Month
  Sex: Male
  Weight: 102.1 kg

DRUGS (15)
  1. TOPROL XL [Suspect]
     Indication: HEART RATE INCREASED
     Route: 048
     Dates: start: 20050301
  2. TOPROL XL [Suspect]
     Indication: HEART RATE IRREGULAR
     Route: 048
     Dates: start: 20050301
  3. TOPROL XL [Suspect]
     Indication: HEART RATE INCREASED
     Route: 048
     Dates: start: 20060116
  4. TOPROL XL [Suspect]
     Indication: HEART RATE IRREGULAR
     Route: 048
     Dates: start: 20060116
  5. TOPROL XL [Suspect]
     Indication: HEART RATE INCREASED
     Dosage: DAILY
     Route: 048
     Dates: start: 201112
  6. TOPROL XL [Suspect]
     Indication: HEART RATE IRREGULAR
     Dosage: DAILY
     Route: 048
     Dates: start: 201112
  7. TOPROL XL [Suspect]
     Indication: HEART RATE INCREASED
     Route: 048
     Dates: start: 201112
  8. TOPROL XL [Suspect]
     Indication: HEART RATE IRREGULAR
     Route: 048
     Dates: start: 201112
  9. ALBUTEROL [Suspect]
  10. LIPITOR [Concomitant]
  11. TRICOR [Concomitant]
  12. PLAVIX [Concomitant]
  13. ASA [Concomitant]
  14. ZYLOPRIM [Concomitant]
     Dosage: LONG ACTING INHALER
  15. LONG ACTING INHALER [Concomitant]
     Dosage: PRN
     Route: 055

REACTIONS (7)
  - Overdose [Recovered/Resolved]
  - Asthma [Recovered/Resolved]
  - Palpitations [Recovered/Resolved]
  - Cough [Unknown]
  - Wheezing [Unknown]
  - Insomnia [Unknown]
  - Off label use [Unknown]
